FAERS Safety Report 7215489-2 (Version None)
Quarter: 2011Q1

REPORT INFORMATION
  Report Type: 
  Country: None (occurrence: None)
  Receive Date: 20110107
  Receipt Date: 20110104
  Transmission Date: 20110831
  Serious: Yes (Other)
  Sender: FDA-Public Use
  Company Number: A0902826A

PATIENT
  Age: 66 Year
  Sex: Female

DRUGS (3)
  1. LIPITOR [Concomitant]
  2. DIETARY SUPPLEMENT [Concomitant]
  3. AUGMENTIN '125' [Suspect]
     Indication: DIVERTICULITIS
     Route: 048
     Dates: start: 20100901, end: 20101001

REACTIONS (3)
  - CLOSTRIDIAL INFECTION [None]
  - GASTROENTERITIS EOSINOPHILIC [None]
  - GASTROINTESTINAL PAIN [None]
